FAERS Safety Report 9102649 (Version 1)
Quarter: 2013Q1

REPORT INFORMATION
  Report Type: Spontaneous
  Country: IT (occurrence: IT)
  Receive Date: 20130219
  Receipt Date: 20130219
  Transmission Date: 20140127
  Serious: Yes (Hospitalization)
  Sender: FDA-Public Use
  Company Number: IT-TEVA-386432ISR

PATIENT
  Age: 42 Year
  Sex: Female

DRUGS (3)
  1. CABERGOLINE [Suspect]
     Indication: PARKINSON^S DISEASE
     Route: 065
  2. PRAMIPEXOLE [Suspect]
     Indication: PARKINSON^S DISEASE
     Route: 065
  3. LEVODOPA [Suspect]
     Indication: PARKINSON^S DISEASE
     Dosage: INITIALLY LOW DOSE, GRADUALLY INCREASED OVER TIME
     Route: 065

REACTIONS (1)
  - Pathological gambling [Unknown]
